FAERS Safety Report 16928701 (Version 1)
Quarter: 2019Q4

REPORT INFORMATION
  Report Type: Spontaneous
  Country: US (occurrence: US)
  Receive Date: 20190823
  Receipt Date: 20190823
  Transmission Date: 20200122
  Serious: No
  Sender: FDA-Public Use
  Company Number: None

PATIENT
  Age: 69 Year
  Sex: Male
  Weight: 131 kg

DRUGS (1)
  1. ALOGLIPTIN. [Suspect]
     Active Substance: ALOGLIPTIN
     Route: 048
     Dates: start: 20190213, end: 20190715

REACTIONS (8)
  - Arthralgia [None]
  - Insomnia [None]
  - Chest discomfort [None]
  - Myalgia [None]
  - Confusional state [None]
  - Flatulence [None]
  - Feeling abnormal [None]
  - Dyspepsia [None]

NARRATIVE: CASE EVENT DATE: 20190719
